FAERS Safety Report 6446411-4 (Version None)
Quarter: 2009Q4

REPORT INFORMATION
  Report Type: 
  Country: None (occurrence: None)
  Receive Date: 20091119
  Receipt Date: 20091105
  Transmission Date: 20100525
  Serious: Yes (Disabling)
  Sender: FDA-Public Use
  Company Number: PHEH2009US15264

PATIENT
  Sex: Female
  Weight: 58.05 kg

DRUGS (1)
  1. RECLAST [Suspect]
     Indication: OSTEOPOROSIS POSTMENOPAUSAL
     Dosage: 5 MG, ONCE/SINGLE
     Dates: start: 20090505, end: 20090505

REACTIONS (5)
  - ABASIA [None]
  - BONE PAIN [None]
  - BURNING SENSATION [None]
  - INFLUENZA LIKE ILLNESS [None]
  - PAIN [None]
